FAERS Safety Report 20250527 (Version 1)
Quarter: 2021Q4

REPORT INFORMATION
  Report Type: Spontaneous
  Country: US (occurrence: None)
  Receive Date: 20211229
  Receipt Date: 20211229
  Transmission Date: 20220303
  Serious: No
  Sender: FDA-Public Use
  Company Number: None

PATIENT
  Age: 36 Year
  Sex: Female
  Weight: 56.25 kg

DRUGS (3)
  1. EQUATE SALINE PACKETS [Suspect]
     Active Substance: SODIUM BICARBONATE\SODIUM CHLORIDE
     Indication: Nasal congestion
     Dosage: OTHER ROUTE : SQUIRTED IN THE NOSE;?
     Route: 050
     Dates: start: 20211229, end: 20211229
  2. MATCHA TEA [Concomitant]
  3. PROBIOTICS NOS [Concomitant]
     Active Substance: PROBIOTICS NOS

REACTIONS (3)
  - Rhinorrhoea [None]
  - Eye swelling [None]
  - Eye pruritus [None]

NARRATIVE: CASE EVENT DATE: 20211229
